FAERS Safety Report 14928784 (Version 3)
Quarter: 2019Q2

REPORT INFORMATION
  Report Type: Spontaneous
  Country: GR (occurrence: GR)
  Receive Date: 20180523
  Receipt Date: 20190402
  Transmission Date: 20190711
  Serious: Yes (Death, Hospitalization, Other)
  Sender: FDA-Public Use
  Company Number: GR-GLAXOSMITHKLINE-GR2018088850

PATIENT
  Age: 76 Year
  Sex: Female

DRUGS (2)
  1. DICLOFENAC [Suspect]
     Active Substance: DICLOFENAC
     Indication: ANTIINFLAMMATORY THERAPY
     Dosage: 100 MG, QD
     Route: 048
  2. QUINAPRIL. [Concomitant]
     Active Substance: QUINAPRIL
     Indication: HYPERTENSION
     Dosage: UNK
     Route: 065

REACTIONS (8)
  - Autoimmune hepatitis [Fatal]
  - Hepatic encephalopathy [Fatal]
  - Jaundice [Fatal]
  - Vomiting [Fatal]
  - Abdominal pain [Fatal]
  - Nausea [Fatal]
  - Back pain [Fatal]
  - Upper gastrointestinal haemorrhage [Fatal]
